FAERS Safety Report 8529481-9 (Version None)
Quarter: 2012Q3

REPORT INFORMATION
  Report Type: 
  Country: None (occurrence: None)
  Receive Date: 20120723
  Receipt Date: 20120710
  Transmission Date: 20120928
  Serious: Yes (Other)
  Sender: FDA-Public Use
  Company Number: US-009507513-1207USA005430

PATIENT

DRUGS (3)
  1. PEG-INTRON [Suspect]
     Indication: HEPATITIS C
     Dosage: UNK
     Dates: start: 20120603
  2. REBETOL [Suspect]
     Indication: HEPATITIS C
     Dosage: UNK
     Dates: start: 20120603
  3. VICTRELIS [Suspect]
     Indication: HEPATITIS C
     Dosage: UNK
     Dates: start: 20120702

REACTIONS (13)
  - POLLAKIURIA [None]
  - HYPERHIDROSIS [None]
  - EATING DISORDER [None]
  - ORAL PAIN [None]
  - THIRST [None]
  - DECREASED APPETITE [None]
  - CHRONIC OBSTRUCTIVE PULMONARY DISEASE [None]
  - TOOTH EXTRACTION [None]
  - FATIGUE [None]
  - ASTHENIA [None]
  - TEMPERATURE INTOLERANCE [None]
  - PAIN IN EXTREMITY [None]
  - BACK PAIN [None]
